FAERS Safety Report 14567125 (Version 1)
Quarter: 2018Q1

REPORT INFORMATION
  Report Type: Spontaneous
  Country: US (occurrence: US)
  Receive Date: 20180223
  Receipt Date: 20180223
  Transmission Date: 20180509
  Serious: Yes (Other)
  Sender: FDA-Public Use
  Company Number: US-TEVA-2018-US-862376

PATIENT
  Age: 80 Year

DRUGS (4)
  1. METOPROLOL. [Concomitant]
     Active Substance: METOPROLOL
  2. WARFARIN [Suspect]
     Active Substance: WARFARIN
     Route: 065
  3. DILTIAZEM. [Concomitant]
     Active Substance: DILTIAZEM
  4. LISINOPRIL. [Concomitant]
     Active Substance: LISINOPRIL
     Route: 065

REACTIONS (1)
  - Transient ischaemic attack [Unknown]
